FAERS Safety Report 5258030-6 (Version None)
Quarter: 2007Q1

REPORT INFORMATION
  Report Type: 
  Country: None (occurrence: None)
  Receive Date: 20070307
  Receipt Date: 20070123
  Transmission Date: 20070707
  Serious: No
  Sender: FDA-Public Use
  Company Number: US-GLAXOSMITHKLINE-A0632111A

PATIENT
  Age: 67 Year
  Sex: Female

DRUGS (12)
  1. REQUIP [Suspect]
     Indication: RESTLESS LEGS SYNDROME
     Dosage: 3MG THREE TIMES PER DAY
     Route: 048
  2. SINEMET [Concomitant]
  3. NORVASC [Concomitant]
  4. XANAX [Concomitant]
  5. PRAVASTATIN [Concomitant]
  6. CLARINEX [Concomitant]
  7. ISOSORBIDE MONONITRATE [Concomitant]
  8. VERAPAMIL [Concomitant]
  9. OMEPRAZOLE [Concomitant]
  10. AGGRENOX [Concomitant]
  11. NASONEX [Concomitant]
  12. NITROSTAT [Concomitant]

REACTIONS (2)
  - NAUSEA [None]
  - THERAPEUTIC RESPONSE UNEXPECTED [None]
